FAERS Safety Report 19462817 (Version 4)
Quarter: 2021Q4

REPORT INFORMATION
  Report Type: Report from Study
  Country: CO (occurrence: CO)
  Receive Date: 20210625
  Receipt Date: 20211119
  Transmission Date: 20220303
  Serious: Yes (Hospitalization, Other)
  Sender: FDA-Public Use
  Company Number: CO-ABBVIE-21K-036-3965835-00

PATIENT
  Sex: Male
  Weight: 65 kg

DRUGS (5)
  1. HUMIRA [Suspect]
     Active Substance: ADALIMUMAB
     Indication: Ankylosing spondylitis
     Route: 058
     Dates: start: 20101206
  2. HUMIRA [Suspect]
     Active Substance: ADALIMUMAB
     Indication: Ankylosing spondylitis
     Route: 058
     Dates: end: 20210420
  3. HUMIRA [Suspect]
     Active Substance: ADALIMUMAB
     Route: 058
     Dates: start: 2021, end: 20210920
  4. HUMIRA [Suspect]
     Active Substance: ADALIMUMAB
     Route: 058
     Dates: start: 2021
  5. CARVEDILOL [Suspect]
     Active Substance: CARVEDILOL
     Indication: Adverse event
     Route: 065

REACTIONS (25)
  - Gastritis [Not Recovered/Not Resolved]
  - Haemorrhage [Recovering/Resolving]
  - Cholelithiasis [Recovering/Resolving]
  - Heart valve stenosis [Recovering/Resolving]
  - Arterial rupture [Recovering/Resolving]
  - Pain [Not Recovered/Not Resolved]
  - Cholelithiasis [Not Recovered/Not Resolved]
  - Diverticulitis [Not Recovered/Not Resolved]
  - Infection [Not Recovered/Not Resolved]
  - Pneumonia [Recovering/Resolving]
  - Gastric ulcer [Not Recovered/Not Resolved]
  - Weight decreased [Recovering/Resolving]
  - Vitamin D decreased [Not Recovered/Not Resolved]
  - Blood glucose decreased [Not Recovered/Not Resolved]
  - Peripheral swelling [Recovered/Resolved]
  - Insomnia [Recovering/Resolving]
  - Hyperhidrosis [Recovering/Resolving]
  - Anosmia [Recovering/Resolving]
  - Blood pressure increased [Recovering/Resolving]
  - Blood glucose increased [Recovering/Resolving]
  - Decreased appetite [Recovered/Resolved]
  - Bone demineralisation [Recovering/Resolving]
  - Pruritus [Recovering/Resolving]
  - Dizziness [Unknown]
  - Discouragement [Recovering/Resolving]

NARRATIVE: CASE EVENT DATE: 20150101
